FAERS Safety Report 16202634 (Version 1)
Quarter: 2019Q2

REPORT INFORMATION
  Report Type: Spontaneous
  Country: US (occurrence: US)
  Receive Date: 20190416
  Receipt Date: 20190416
  Transmission Date: 20190711
  Serious: Yes (Other)
  Sender: FDA-Public Use
  Company Number: US-AKORN PHARMACEUTICALS-2019AKN00700

PATIENT
  Age: 34 Year
  Sex: Female

DRUGS (2)
  1. TRIAMCINOLONE ACETONIDE. [Suspect]
     Active Substance: TRIAMCINOLONE ACETONIDE
     Indication: CHORIORETINITIS
     Dosage: 4 MG, ONCE
  2. TRIAMCINOLONE ACETONIDE. [Suspect]
     Active Substance: TRIAMCINOLONE ACETONIDE
     Dosage: EVERY 6 MONTHS, FOR 6 DOSES

REACTIONS (3)
  - Intraocular pressure increased [Recovered/Resolved]
  - Non-infectious endophthalmitis [Recovered/Resolved]
  - Cataract subcapsular [Recovered/Resolved]
